FAERS Safety Report 6695367-8 (Version None)
Quarter: 2010Q2

REPORT INFORMATION
  Report Type: 
  Country: None (occurrence: None)
  Receive Date: 20100423
  Receipt Date: 20100423
  Transmission Date: 20101027
  Serious: Yes (Hospitalization)
  Sender: FDA-Public Use
  Company Number: None

PATIENT
  Age: 54 Year
  Sex: Female
  Weight: 90.1 kg

DRUGS (4)
  1. METOPROLOL TARTRATE [Suspect]
     Indication: HYPERTENSION
     Dosage: 25 MG DAILY PO RECENT
     Route: 048
  2. ACIPHEX [Concomitant]
  3. M.V.I. [Concomitant]
  4. ASPIRIN [Concomitant]

REACTIONS (2)
  - CHEST PAIN [None]
  - DRUG HYPERSENSITIVITY [None]
